FAERS Safety Report 7018567-6 (Version None)
Quarter: 2010Q3

REPORT INFORMATION
  Report Type: 
  Country: None (occurrence: None)
  Receive Date: 20100924
  Receipt Date: 20100914
  Transmission Date: 20110219
  Serious: Yes (Other)
  Sender: FDA-Public Use
  Company Number: 1000014759

PATIENT
  Sex: Female

DRUGS (4)
  1. ESCITALOPRAM [Suspect]
     Indication: ANXIETY
     Dosage: ORAL
     Route: 048
  2. FLUOXETINE [Suspect]
     Indication: ANXIETY
  3. FLUOXETINE [Suspect]
     Indication: BULIMIA NERVOSA
  4. ALPRAZOLAM [Concomitant]

REACTIONS (5)
  - ANXIETY [None]
  - BULIMIA NERVOSA [None]
  - COMPLEX PARTIAL SEIZURES [None]
  - CONDITION AGGRAVATED [None]
  - EPILEPSY [None]
